FAERS Safety Report 8435728-X (Version None)
Quarter: 2012Q2

REPORT INFORMATION
  Report Type: 
  Country: None (occurrence: None)
  Receive Date: 20120614
  Receipt Date: 20120607
  Transmission Date: 20120825
  Serious: No
  Sender: FDA-Public Use
  Company Number: US-PFIZER INC-2012101748

PATIENT
  Age: 41 Year
  Sex: Male
  Weight: 92.971 kg

DRUGS (2)
  1. LORATADINE AND PSEUDOEPHEDRINE SULFATE [Suspect]
     Indication: HYPERSENSITIVITY
     Dosage: UNK, EVERY 12 HOURS
     Route: 048
     Dates: start: 20120419
  2. RESTORIL [Concomitant]
     Indication: SLEEP DISORDER
     Dosage: 50 MG, DAILY

REACTIONS (2)
  - DRUG INEFFECTIVE [None]
  - FEELING ABNORMAL [None]
